FAERS Safety Report 17472562 (Version 1)
Quarter: 2020Q1

REPORT INFORMATION
  Report Type: Spontaneous
  Country: US (occurrence: US)
  Receive Date: 20200217
  Receipt Date: 20200217
  Transmission Date: 20200409
  Serious: Yes (Hospitalization)
  Sender: FDA-Public Use
  Company Number: None

PATIENT
  Age: 42 Year

DRUGS (19)
  1. DULOXETINE. [Concomitant]
     Active Substance: DULOXETINE
  2. PHENTERMINE. [Concomitant]
     Active Substance: PHENTERMINE
  3. POTASSIUM CHLORIDE. [Concomitant]
     Active Substance: POTASSIUM CHLORIDE
  4. GABAPENTIN. [Concomitant]
     Active Substance: GABAPENTIN
  5. CYCLOBENZAPRINE. [Concomitant]
     Active Substance: CYCLOBENZAPRINE
  6. ADEMOLOG [Concomitant]
  7. BASAGLAR [Concomitant]
     Active Substance: INSULIN GLARGINE
  8. FEROSUL [Concomitant]
     Active Substance: FERROUS SULFATE
  9. REXULTI [Concomitant]
     Active Substance: BREXPIPRAZOLE
  10. METHYLPRED [Concomitant]
     Active Substance: METHYLPREDNISOLONE
  11. MONTELUKAST [Concomitant]
     Active Substance: MONTELUKAST SODIUM
  12. FLUTICASONE NASAL SPRAY [Concomitant]
     Active Substance: FLUTICASONE
  13. CIMZIA [Suspect]
     Active Substance: CERTOLIZUMAB PEGOL
     Indication: RHEUMATOID ARTHRITIS
     Dosage: ?          OTHER FREQUENCY:EVERY 28 DAYS;?
     Route: 058
     Dates: start: 20190226
  14. IPRATROPIUM [Concomitant]
     Active Substance: IPRATROPIUM
  15. ALBUTEROL. [Concomitant]
     Active Substance: ALBUTEROL
  16. LEVOTHYROXINE. [Concomitant]
     Active Substance: LEVOTHYROXINE
  17. NICOTINE. [Concomitant]
     Active Substance: NICOTINE
  18. PANTOPRAZOLE [Concomitant]
     Active Substance: PANTOPRAZOLE
  19. METFORMIN [Concomitant]
     Active Substance: METFORMIN HYDROCHLORIDE

REACTIONS (2)
  - Hospitalisation [None]
  - Therapy cessation [None]

NARRATIVE: CASE EVENT DATE: 20200214
